FAERS Safety Report 4849979-4 (Version None)
Quarter: 2005Q4

REPORT INFORMATION
  Report Type: 
  Country: None (occurrence: None)
  Receive Date: 20051123
  Receipt Date: 20050207
  Transmission Date: 20060501
  Serious: Yes (Other)
  Sender: FDA-Public Use
  Company Number: 2005005675

PATIENT
  Age: 57 Year
  Sex: Male

DRUGS (3)
  1. LIPITOR [Suspect]
     Indication: CORONARY ARTERY SURGERY
     Dosage: 10 MG,ORAL
     Route: 048
     Dates: start: 20041201, end: 20041221
  2. LIPITOR [Suspect]
     Indication: LIPIDS INCREASED
     Dosage: 10 MG,ORAL
     Route: 048
     Dates: start: 20041201, end: 20041221
  3. ASPIRIN [Concomitant]

REACTIONS (1)
  - HYPERSENSITIVITY [None]
